FAERS Safety Report 16108875 (Version 1)
Quarter: 2019Q1

REPORT INFORMATION
  Report Type: Spontaneous
  Country: PL (occurrence: PL)
  Receive Date: 20190323
  Receipt Date: 20190323
  Transmission Date: 20190418
  Serious: Yes (Other)
  Sender: FDA-Public Use
  Company Number: PL-009507513-1903POL007758

PATIENT
  Age: 58 Year
  Sex: Female

DRUGS (1)
  1. ZEPATIER [Suspect]
     Active Substance: ELBASVIR\GRAZOPREVIR
     Dosage: UNK
     Route: 048

REACTIONS (2)
  - Hepatitis C [Unknown]
  - Drug ineffective [Unknown]
